FAERS Safety Report 5923150-7 (Version None)
Quarter: 2008Q4

REPORT INFORMATION
  Report Type: 
  Country: None (occurrence: None)
  Receive Date: 20081015
  Receipt Date: 20081003
  Transmission Date: 20090506
  Serious: Yes (Hospitalization, Other)
  Sender: FDA-Public Use
  Company Number: 035273

PATIENT
  Age: 23 Year
  Sex: Female

DRUGS (2)
  1. MEDROXYPROGESTERONE ACETATE [Suspect]
     Indication: DELAYED PUBERTY
     Dosage: 10 MG, ORAL
     Route: 048
  2. CONJUGATED ESTROGENS [Suspect]
     Indication: DELAYED PUBERTY
     Dosage: 0.625 MG

REACTIONS (4)
  - ANAEMIA [None]
  - MENORRHAGIA [None]
  - PELVIC PAIN [None]
  - UTERINE LEIOMYOMA [None]
